FAERS Safety Report 8933349 (Version 1)
Quarter: 2012Q4

REPORT INFORMATION
  Report Type: 
  Country: DE (occurrence: DE)
  Receive Date: 20121129
  Receipt Date: 20121129
  Transmission Date: 20130627
  Serious: Yes (Hospitalization)
  Sender: FDA-Public Use
  Company Number: DE-009507513-1211DEU010433

PATIENT
  Age: 76 Year
  Sex: Male

DRUGS (1)
  1. NACOM 100 MG/25 MG TABLETTEN [Suspect]
     Indication: PARKINSON^S DISEASE
     Dosage: UNK
     Route: 048
     Dates: start: 201105

REACTIONS (1)
  - Hallucination, auditory [Not Recovered/Not Resolved]
